FAERS Safety Report 21032164 (Version 1)
Quarter: 2022Q3

REPORT INFORMATION
  Report Type: Spontaneous
  Country: TR (occurrence: TR)
  Receive Date: 20220701
  Receipt Date: 20220701
  Transmission Date: 20221027
  Serious: Yes (Other)
  Sender: FDA-Public Use
  Company Number: TR-NOVARTISPH-NVSC2022TR149540

PATIENT
  Age: 7 Year
  Sex: Female

DRUGS (6)
  1. TOPOTECAN [Suspect]
     Active Substance: TOPOTECAN HYDROCHLORIDE
     Indication: Retinoblastoma
     Dosage: 20 UG (4 INJECTIONS PREOPERATIVE)
     Route: 031
  2. TOPOTECAN [Suspect]
     Active Substance: TOPOTECAN HYDROCHLORIDE
     Dosage: 20 UG (INTRA-OPERATIVE AS PROPHYLACTIC INJECTION)
     Route: 031
  3. TOPOTECAN [Suspect]
     Active Substance: TOPOTECAN HYDROCHLORIDE
     Dosage: 20 UG (POST-OPERATIVE FIRST MONTH AS PROPHYLACTIC INJECTION)
     Route: 031
  4. MELPHALAN [Suspect]
     Active Substance: MELPHALAN
     Indication: Retinoblastoma
     Dosage: 40 UG (4 INJECTIONS PREOPERATIVE)
     Route: 031
  5. MELPHALAN [Suspect]
     Active Substance: MELPHALAN
     Dosage: 40 UG (INTRA-OPERATIVE AS PROPHYLACTIC INJECTION)
     Route: 031
  6. MELPHALAN [Suspect]
     Active Substance: MELPHALAN
     Dosage: 40 UG (POST-OPERATIVE FIRST MONTH AS PROPHYLACTIC INJECTION)
     Route: 031

REACTIONS (3)
  - Cataract subcapsular [Unknown]
  - Product use issue [Unknown]
  - Product use in unapproved indication [Unknown]
